FAERS Safety Report 10477228 (Version 1)
Quarter: 2014Q3

REPORT INFORMATION
  Report Type: Spontaneous
  Country: PL (occurrence: PL)
  Receive Date: 20140926
  Receipt Date: 20140926
  Transmission Date: 20150326
  Serious: Yes (Other)
  Sender: FDA-Public Use
  Company Number: PL-BRISTOL-MYERS SQUIBB COMPANY-21394085

PATIENT
  Age: 59 Year
  Sex: Female

DRUGS (1)
  1. SPRYCEL [Suspect]
     Active Substance: DASATINIB
     Indication: CHRONIC MYELOID LEUKAEMIA
     Dosage: ON 06 MAY 2013 DOSE WAS REDUCED TO 50 MG DAILY?TABS
     Route: 048
     Dates: start: 20120309, end: 20140711

REACTIONS (1)
  - Femoral artery occlusion [Not Recovered/Not Resolved]

NARRATIVE: CASE EVENT DATE: 201309
